FAERS Safety Report 9671923 (Version 1)
Quarter: 2013Q4

REPORT INFORMATION
  Report Type: Spontaneous
  Country: US (occurrence: US)
  Receive Date: 20131106
  Receipt Date: 20131106
  Transmission Date: 20140711
  Serious: Yes (Other)
  Sender: FDA-Public Use
  Company Number: US-SHIRE-ALL1-2013-07384

PATIENT
  Age: 51 Year
  Sex: Female
  Weight: 90.7 kg

DRUGS (5)
  1. 433 (CARBAMAZEPINE) [Suspect]
     Indication: EPILEPSY
     Dosage: 400 MG,(TWO 200 MG) 1X/DAY:QD
     Route: 048
     Dates: start: 201001
  2. 433 (CARBAMAZEPINE) [Suspect]
     Dosage: 800 MG,(FOUR 200 MG ) 1X/DAY:QD
     Route: 048
     Dates: start: 201001
  3. LISINOPRIL [Concomitant]
     Indication: HYPERTENSION
     Dosage: 10 MG, 1X/DAY:QD
     Route: 048
     Dates: start: 1995
  4. LEVOTHYROXINE [Concomitant]
     Indication: HYPOTHYROIDISM
     Dosage: 25 MG, 1X/DAY:QD
     Route: 048
     Dates: start: 2009
  5. TOPAMAX [Concomitant]
     Indication: EPILEPSY
     Dosage: 50 MG, 2X/DAY:BID
     Route: 048
     Dates: start: 2009

REACTIONS (5)
  - Convulsion [Recovered/Resolved]
  - Pain [Not Recovered/Not Resolved]
  - Chest discomfort [Not Recovered/Not Resolved]
  - Limb discomfort [Not Recovered/Not Resolved]
  - Stress [Not Recovered/Not Resolved]
